FAERS Safety Report 7530627-X (Version None)
Quarter: 2011Q2

REPORT INFORMATION
  Report Type: 
  Country: None (occurrence: None)
  Receive Date: 20110607
  Receipt Date: 20110526
  Transmission Date: 20111010
  Serious: Yes (Disabling, Other)
  Sender: FDA-Public Use
  Company Number: US-ASTRAZENECA-2011SE32450

PATIENT
  Sex: Male

DRUGS (12)
  1. LIPITOR [Suspect]
     Indication: HYPERCHOLESTEROLAEMIA
     Dates: start: 20060101
  2. TOPROL-XL [Suspect]
     Indication: CARDIAC DISORDER
     Route: 048
  3. ALBUTEROL [Suspect]
     Indication: CHRONIC OBSTRUCTIVE PULMONARY DISEASE
     Dosage: 0.83 PERCENT OF 25 MGS
  4. SPIRIVA [Suspect]
     Indication: CHRONIC OBSTRUCTIVE PULMONARY DISEASE
     Route: 055
  5. KLONOPIN [Suspect]
  6. ZETIA [Suspect]
     Indication: CARDIAC DISORDER
  7. ASPIRIN [Suspect]
     Indication: CARDIAC DISORDER
  8. ARFORMOTEROL TARTRATE [Suspect]
     Indication: CHRONIC OBSTRUCTIVE PULMONARY DISEASE
     Dosage: 15 MCGS PER TWO ML
  9. PREDNISONE [Suspect]
     Indication: EMPHYSEMA
  10. PROZAC [Suspect]
  11. PULMICORT [Suspect]
     Indication: CHRONIC OBSTRUCTIVE PULMONARY DISEASE
     Dosage: 5 MG PER TWO ML
     Route: 055
  12. PREDNISONE [Suspect]

REACTIONS (4)
  - FATIGUE [None]
  - DIABETES MELLITUS [None]
  - PARAESTHESIA [None]
  - MUSCULAR WEAKNESS [None]
